FAERS Safety Report 13192719 (Version 16)
Quarter: 2018Q3

REPORT INFORMATION
  Report Type: Spontaneous
  Country: CA (occurrence: CA)
  Receive Date: 20170207
  Receipt Date: 20180918
  Transmission Date: 20181010
  Serious: Yes (Death, Hospitalization, Other)
  Sender: FDA-Public Use
  Company Number: CA-CELLTRION INC.-2017CA001221

PATIENT

DRUGS (7)
  1. INFLECTRA [Suspect]
     Active Substance: INFLIXIMAB-DYYB
     Dosage: 10 MG/KG, (900 MG TOTAL) EVERY 4 WEEKS
     Route: 042
     Dates: start: 20180103, end: 20180523
  2. SANDOZ RABEPRAZOLE [Concomitant]
     Active Substance: RABEPRAZOLE
     Dosage: 20 MG, BID
     Dates: start: 201611
  3. PREDNISONE                         /00044702/ [Concomitant]
     Active Substance: PREDNISONE
     Dosage: 20 MG, UNK
     Dates: start: 201612
  4. INFLECTRA [Suspect]
     Active Substance: INFLIXIMAB-DYYB
     Indication: COLITIS ULCERATIVE
     Dosage: 500 MG, EVERY 0, 2, 6 WEEKS, THEN EVERY 8 WEEKS FOR 6 MONTHS
     Route: 042
     Dates: start: 20170116
  5. VITAMINS                           /00067501/ [Concomitant]
     Active Substance: VITAMINS
  6. INFLECTRA [Suspect]
     Active Substance: INFLIXIMAB-DYYB
     Dosage: 10 MG/KG, (900 MG TOTAL) EVERY 4 WEEKS
     Route: 042
  7. INFLECTRA [Suspect]
     Active Substance: INFLIXIMAB-DYYB
     Dosage: 900 MG, CYCLIC (EVERY 8 WEEKS); INTRAVENOUS
     Route: 042
     Dates: start: 20180718, end: 20180718

REACTIONS (20)
  - Dyspnoea [Unknown]
  - Hypochromasia [Unknown]
  - Polychromasia [Unknown]
  - Gastritis erosive [Unknown]
  - Arthropathy [Unknown]
  - Weight decreased [Unknown]
  - Arthralgia [Unknown]
  - Alopecia [Unknown]
  - Death [Fatal]
  - Large intestinal stenosis [Unknown]
  - Gastric ulcer [Unknown]
  - Haemoglobin decreased [Not Recovered/Not Resolved]
  - Abdominal pain [Unknown]
  - Gastrointestinal haemorrhage [Not Recovered/Not Resolved]
  - Chest pain [Unknown]
  - Gastrooesophageal reflux disease [Not Recovered/Not Resolved]
  - Product use issue [Unknown]
  - Pseudopolyposis [Recovering/Resolving]
  - Heart rate increased [Recovered/Resolved]
  - Condition aggravated [Not Recovered/Not Resolved]

NARRATIVE: CASE EVENT DATE: 20170130
